FAERS Safety Report 5097671-6 (Version None)
Quarter: 2006Q3

REPORT INFORMATION
  Report Type: 
  Country: None (occurrence: None)
  Receive Date: 20060901
  Receipt Date: 20060821
  Transmission Date: 20061208
  Serious: Yes (Hospitalization)
  Sender: FDA-Public Use
  Company Number: 2006-08-1222

PATIENT
  Age: 52 Year
  Sex: Female
  Weight: 69.8539 kg

DRUGS (6)
  1. PEG-INTRON [Suspect]
     Indication: HEPATITIS C
     Dosage: 0.33 ML;QW;SC
     Route: 058
     Dates: start: 20060320, end: 20060816
  2. REBETOL [Suspect]
     Indication: HEPATITIS C
     Dosage: 1000 MG;QD;PO
     Route: 048
     Dates: start: 20060320, end: 20060816
  3. WELLBUTRIN [Concomitant]
  4. MULTIVITAMIN [Concomitant]
  5. SPIRONOLACTONE [Concomitant]
  6. SINGULAIR [Concomitant]

REACTIONS (3)
  - RETINAL DETACHMENT [None]
  - RETINAL HAEMORRHAGE [None]
  - VITREOUS FLOATERS [None]
